FAERS Safety Report 6689480-9 (Version None)
Quarter: 2010Q2

REPORT INFORMATION
  Report Type: 
  Country: None (occurrence: None)
  Receive Date: 20100421
  Receipt Date: 20100412
  Transmission Date: 20101027
  Serious: Yes (Hospitalization)
  Sender: FDA-Public Use
  Company Number: US-BIOGENIDEC-2010BI009909

PATIENT
  Age: 45 Year
  Sex: Male

DRUGS (3)
  1. TYSABRI [Suspect]
     Indication: MULTIPLE SCLEROSIS
     Route: 042
     Dates: start: 20090226, end: 20100318
  2. ZANAFLEX [Concomitant]
     Indication: MULTIPLE SCLEROSIS
  3. METOPROLOL TARTRATE [Concomitant]
     Indication: HYPERTENSION

REACTIONS (7)
  - ANXIETY [None]
  - BLOOD TRIGLYCERIDES INCREASED [None]
  - DRUG SPECIFIC ANTIBODY PRESENT [None]
  - ELECTROCARDIOGRAM Q WAVE ABNORMAL [None]
  - HYPERSENSITIVITY [None]
  - LEUKOCYTOSIS [None]
  - LIPIDS INCREASED [None]
